FAERS Safety Report 21128277 (Version 1)
Quarter: 2022Q3

REPORT INFORMATION
  Report Type: Spontaneous
  Country: AT (occurrence: AT)
  Receive Date: 20220725
  Receipt Date: 20220725
  Transmission Date: 20221026
  Serious: Yes (Life-Threatening)
  Sender: FDA-Public Use
  Company Number: None

PATIENT
  Age: 54 Year
  Sex: Female

DRUGS (4)
  1. CARBOPLATIN [Suspect]
     Active Substance: CARBOPLATIN
     Indication: Product used for unknown indication
     Dosage: STRENGTH: 10 MG/ML
     Dates: start: 20220504, end: 20220504
  2. APREPITANT [Concomitant]
     Active Substance: APREPITANT
     Dosage: STRENGTH: 125 MG
     Dates: start: 20220504, end: 20220504
  3. ZOFRAN [Concomitant]
     Active Substance: ONDANSETRON HYDROCHLORIDE
     Dosage: STRENGTH: 8 MG- AMPOULE
     Dates: start: 20220504, end: 20220504
  4. DEXAMETHASONE [Concomitant]
     Active Substance: DEXAMETHASONE
     Dosage: STRENGTH: 40 MG - AMPOULE
     Dates: start: 20220504, end: 20220504

REACTIONS (5)
  - Pruritus [Unknown]
  - Sensation of foreign body [Unknown]
  - Blood pressure decreased [Unknown]
  - Oxygen saturation decreased [Unknown]
  - Rash [Unknown]

NARRATIVE: CASE EVENT DATE: 20220504
